FAERS Safety Report 5662034-9 (Version None)
Quarter: 2008Q1

REPORT INFORMATION
  Report Type: 
  Country: None (occurrence: None)
  Receive Date: 20080208
  Receipt Date: 20070105
  Transmission Date: 20080703
  Serious: Yes (Other)
  Sender: FDA-Public Use
  Company Number: PROG00207000057

PATIENT
  Sex: Female
  Weight: 43.5 kg

DRUGS (2)
  1. PROMETRIUM [Suspect]
     Indication: HORMONE REPLACEMENT THERAPY
     Dosage: 400 MILLIGRAM(S) QD ORAL DAILY DOSE: 400 MILLIGRAM(S)
     Route: 048
     Dates: start: 20061122, end: 20061203
  2. VIVELLE [Concomitant]

REACTIONS (9)
  - ABDOMINAL DISTENSION [None]
  - ABDOMINAL PAIN [None]
  - AMNESIA [None]
  - ANXIETY [None]
  - DIZZINESS [None]
  - FATIGUE [None]
  - IRRITABILITY [None]
  - NAUSEA [None]
  - SUICIDAL IDEATION [None]
